FAERS Safety Report 19250256 (Version 6)
Quarter: 2025Q4

REPORT INFORMATION
  Report Type: Spontaneous
  Country: EU (occurrence: EU)
  Receive Date: 20210512
  Receipt Date: 20251229
  Transmission Date: 20260117
  Serious: Yes (Death, Hospitalization, Other)
  Sender: PFIZER
  Company Number: EU-MLMSERVICE-20210429-2859662-1

PATIENT
  Age: 54 Year
  Sex: Male

DRUGS (3)
  1. CARBOPLATIN [Suspect]
     Active Substance: CARBOPLATIN
     Indication: Non-small cell lung cancer metastatic
     Dosage: AUC 5, EVERY 3 WEEKS (Q3W)
     Dates: start: 20200601
  2. PEMETREXED [Suspect]
     Active Substance: PEMETREXED
     Indication: Non-small cell lung cancer metastatic
     Dosage: 500 MG/M2, EVERY 3 WEEKS (Q3W)
     Dates: start: 20200601
  3. PEMBROLIZUMAB [Suspect]
     Active Substance: PEMBROLIZUMAB
     Indication: Non-small cell lung cancer metastatic
     Dosage: 200 MILLIGRAM, EVERY 3 WEEKS (Q3W)
     Dates: start: 202006

REACTIONS (8)
  - Sudden death [Fatal]
  - Pericarditis [Recovering/Resolving]
  - Acute myocardial infarction [Recovering/Resolving]
  - Atrial fibrillation [Recovered/Resolved]
  - Pericarditis malignant [Recovering/Resolving]
  - Pericardial effusion [Recovering/Resolving]
  - Paraneoplastic syndrome [Recovering/Resolving]
  - Dyspnoea [Unknown]

NARRATIVE: CASE EVENT DATE: 20200601
